FAERS Safety Report 4400320-0 (Version None)
Quarter: 2004Q2

REPORT INFORMATION
  Report Type: 
  Country: None (occurrence: None)
  Receive Date: 20040618
  Receipt Date: 20040518
  Transmission Date: 20050107
  Serious: No
  Sender: FDA-Public Use
  Company Number: US-JNJFOC-20040504450

PATIENT
  Age: 32 Year
  Sex: Female
  Weight: 54.4316 kg

DRUGS (8)
  1. ORTHO EVRA [Suspect]
     Indication: CONTRACEPTION
     Dosage: 1 DOSE(S), 3 IN 4 WEEK, TRANSDERMAL
     Route: 062
     Dates: start: 20040502
  2. TYLENOL W/ CODEINE NO. 3 [Concomitant]
  3. PROVIGEL (MODAFINIL) [Concomitant]
  4. CELEBREX [Concomitant]
  5. RITALIN [Concomitant]
  6. KLONOPIN [Concomitant]
  7. LEXAPRO [Concomitant]
  8. ELAVIL (AMITRIPTYLINE HYDROCHLORIDE) TABLETS [Concomitant]

REACTIONS (2)
  - ABDOMINAL PAIN [None]
  - METRORRHAGIA [None]
